FAERS Safety Report 11956886 (Version 1)
Quarter: 2016Q1

REPORT INFORMATION
  Report Type: Spontaneous
  Country: DE (occurrence: DE)
  Receive Date: 20160126
  Receipt Date: 20160126
  Transmission Date: 20160526
  Serious: Yes (Hospitalization)
  Sender: FDA-Public Use
  Company Number: DE-009507513-1512DEU011776

PATIENT
  Age: 52 Year
  Sex: Male

DRUGS (1)
  1. KEYTRUDA [Suspect]
     Active Substance: PEMBROLIZUMAB
     Indication: MALIGNANT MELANOMA
     Dosage: 2 MG/KG, BID
     Route: 042
     Dates: start: 20151111, end: 20151202

REACTIONS (2)
  - Pulmonary mass [Recovered/Resolved]
  - Pneumonitis [Unknown]

NARRATIVE: CASE EVENT DATE: 2015
